FAERS Safety Report 19355850 (Version 1)
Quarter: 2021Q2

REPORT INFORMATION
  Report Type: Spontaneous
  Country: US (occurrence: US)
  Receive Date: 20210601
  Receipt Date: 20210601
  Transmission Date: 20210717
  Serious: Yes (Hospitalization)
  Sender: FDA-Public Use
  Company Number: None

PATIENT
  Age: 84 Year
  Sex: Female

DRUGS (2)
  1. SILDENAFIL TAB 20MG [Suspect]
     Active Substance: SILDENAFIL
     Route: 048
     Dates: start: 201801
  2. BOSENTAN. [Suspect]
     Active Substance: BOSENTAN

REACTIONS (1)
  - Cardiac pacemaker replacement [None]

NARRATIVE: CASE EVENT DATE: 20210420
